FAERS Safety Report 4384792-6 (Version None)
Quarter: 2004Q2

REPORT INFORMATION
  Report Type: 
  Country: None (occurrence: None)
  Receive Date: 20040625
  Receipt Date: 20040618
  Transmission Date: 20050107
  Serious: Yes (Hospitalization)
  Sender: FDA-Public Use
  Company Number: 200412394FR

PATIENT
  Age: 28 Year
  Sex: Female

DRUGS (1)
  1. FLAGYL [Suspect]
     Route: 042
     Dates: start: 20031015

REACTIONS (1)
  - BLOOD PRESSURE DECREASED [None]
